FAERS Safety Report 14508442 (Version 1)
Quarter: 2018Q1

REPORT INFORMATION
  Report Type: Spontaneous
  Country: US (occurrence: US)
  Receive Date: 20180209
  Receipt Date: 20180209
  Transmission Date: 20180509
  Serious: No
  Sender: FDA-Public Use
  Company Number: US-ENDO PHARMACEUTICALS INC-2017-004821

PATIENT
  Sex: Female

DRUGS (4)
  1. METHYLPREDNISOLONE TABLETS 4MG [Suspect]
     Active Substance: METHYLPREDNISOLONE
     Dosage: 2 DF ON DAY 3
     Route: 065
  2. METHYLPREDNISOLONE TABLETS 4MG [Suspect]
     Active Substance: METHYLPREDNISOLONE
     Dosage: 4 DF ON DAY 2
     Route: 065
  3. METHYLPREDNISOLONE TABLETS 4MG [Suspect]
     Active Substance: METHYLPREDNISOLONE
     Indication: PRODUCT USED FOR UNKNOWN INDICATION
     Dosage: 6 DF ON DAY 1
     Route: 065
  4. METHYLPREDNISOLONE TABLETS 4MG [Suspect]
     Active Substance: METHYLPREDNISOLONE
     Dosage: 1 DF, UNKNOWN (PRESCRIBED TO TAKE 3 TABLETS ON DAY 4)
     Route: 065

REACTIONS (2)
  - Drug dose omission [Unknown]
  - Confusional state [Unknown]
